FAERS Safety Report 14592402 (Version 1)
Quarter: 2018Q1

REPORT INFORMATION
  Report Type: Spontaneous
  Country: US (occurrence: US)
  Receive Date: 20180302
  Receipt Date: 20180302
  Transmission Date: 20180509
  Serious: No
  Sender: FDA-Public Use
  Company Number: US-NOVOPROD-545586

PATIENT
  Age: 61 Year
  Sex: Female

DRUGS (1)
  1. VICTOZA [Suspect]
     Active Substance: LIRAGLUTIDE
     Indication: INSULIN RESISTANCE
     Dosage: UNK
     Route: 058

REACTIONS (5)
  - Product quality issue [Unknown]
  - Nausea [Recovered/Resolved]
  - Lack of satiety [Unknown]
  - Drug ineffective [Unknown]
  - Hunger [Unknown]
